FAERS Safety Report 24827826 (Version 2)
Quarter: 2025Q1

REPORT INFORMATION
  Report Type: Spontaneous
  Country: US (occurrence: US)
  Receive Date: 20250109
  Receipt Date: 20250122
  Transmission Date: 20250408
  Serious: No
  Sender: MYLAN
  Company Number: US-MYLANLABS-2025M1001132

PATIENT
  Age: 72 Year
  Sex: Female

DRUGS (1)
  1. ESTRADIOL [Suspect]
     Active Substance: ESTRADIOL
     Indication: Menopause
     Dosage: 0.01 PERCENT, QW (ONCE WEEKLY)
     Route: 067
     Dates: start: 202412

REACTIONS (2)
  - Device issue [None]
  - Product quality issue [None]

NARRATIVE: CASE EVENT DATE: 20241201
